FAERS Safety Report 6131581-8 (Version None)
Quarter: 2009Q1

REPORT INFORMATION
  Report Type: 
  Country: None (occurrence: None)
  Receive Date: 20090325
  Receipt Date: 20081105
  Transmission Date: 20090719
  Serious: No
  Sender: FDA-Public Use
  Company Number: US-BRISTOL-MYERS SQUIBB COMPANY-14396121

PATIENT
  Age: 61 Year
  Sex: Male

DRUGS (13)
  1. ERBITUX [Suspect]
     Indication: COLON CANCER METASTATIC
     Dosage: STARTED 3 WEEKS AGO.
     Dates: start: 20081001
  2. CAMPTOSAR [Suspect]
  3. DOXYCYCLINE [Concomitant]
     Route: 048
  4. ATROPINE [Concomitant]
     Indication: DIARRHOEA
  5. GLIPIZIDE [Concomitant]
  6. NEURONTIN [Concomitant]
  7. LOMOTIL [Concomitant]
  8. CODEINE SUL TAB [Concomitant]
  9. OXYCODONE HCL [Concomitant]
  10. PRILOSEC [Concomitant]
  11. ZANTAC [Concomitant]
  12. POTASSIUM CHLORIDE [Concomitant]
  13. ZOFRAN [Concomitant]

REACTIONS (2)
  - ALOPECIA [None]
  - RASH [None]
